FAERS Safety Report 8136954-X (Version None)
Quarter: 2012Q1

REPORT INFORMATION
  Report Type: 
  Country: None (occurrence: None)
  Receive Date: 20120214
  Receipt Date: 20120202
  Transmission Date: 20120608
  Serious: Yes (Other)
  Sender: FDA-Public Use
  Company Number: FR-ASTRAZENECA-2012SE07821

PATIENT
  Sex: Male

DRUGS (2)
  1. HALDOL [Concomitant]
     Indication: SCHIZOAFFECTIVE DISORDER
  2. QUETIAPINE FUMARATE [Suspect]
     Indication: SCHIZOAFFECTIVE DISORDER
     Route: 048

REACTIONS (1)
  - PSYCHIATRIC DECOMPENSATION [None]
